FAERS Safety Report 9777944 (Version 1)
Quarter: 2013Q4

REPORT INFORMATION
  Report Type: Spontaneous
  Country: IT (occurrence: IT)
  Receive Date: 20131223
  Receipt Date: 20131223
  Transmission Date: 20140711
  Serious: Yes (Hospitalization)
  Sender: FDA-Public Use
  Company Number: IT-BRISTOL-MYERS SQUIBB COMPANY-19923440

PATIENT
  Age: 86 Year
  Sex: Female

DRUGS (12)
  1. METFORMIN HCL [Suspect]
     Indication: INTENTIONAL OVERDOSE
     Dosage: NORMAL DOSE 500 X1
     Route: 048
     Dates: start: 20130417, end: 20130417
  2. TAVOR [Suspect]
     Indication: INTENTIONAL OVERDOSE
     Route: 048
     Dates: start: 20130417, end: 20130417
  3. CIPRALEX [Suspect]
     Indication: INTENTIONAL OVERDOSE
     Dosage: TABS?NORMAL DOSE:10 MG
     Route: 048
     Dates: start: 20130417, end: 20130417
  4. DIAMICRON [Suspect]
     Indication: INTENTIONAL OVERDOSE
     Dosage: 3DF?TABS?NORMAL DOSE:30 X 3
     Route: 048
     Dates: start: 20130417, end: 20130417
  5. TACHIPIRINA [Suspect]
     Indication: INTENTIONAL OVERDOSE
     Route: 048
     Dates: start: 20130417, end: 20130417
  6. SERENASE [Suspect]
     Indication: INTENTIONAL OVERDOSE
     Dosage: NORMAL DOSE:0.5 X 2
     Route: 048
     Dates: start: 20130417, end: 20130417
  7. BISOPROLOL HEMIFUMARATE [Suspect]
     Indication: INTENTIONAL OVERDOSE
     Dosage: NORMAL DOSE: 2.5 X 2
     Route: 048
     Dates: start: 20130417, end: 20130417
  8. MACROGOL [Concomitant]
     Dosage: 1DF: 400 UNITS NOS?DOSAGE:20 X 1
  9. COUMADIN TABS [Concomitant]
  10. CHOLECALCIFEROL [Concomitant]
     Dosage: COLECALCIFEROL 100,?1DF=1 VIAL
     Route: 030
  11. NEXIUM [Concomitant]
  12. ISOPTIN [Concomitant]
     Dosage: FILM-COATED TABLET

REACTIONS (4)
  - Intentional overdose [Recovered/Resolved]
  - Sopor [Recovered/Resolved]
  - Psychomotor hyperactivity [Recovered/Resolved]
  - Bradycardia [Recovered/Resolved]
